FAERS Safety Report 16640255 (Version 1)
Quarter: 2019Q3

REPORT INFORMATION
  Report Type: Spontaneous
  Country: US (occurrence: US)
  Receive Date: 20190613
  Receipt Date: 20190613
  Transmission Date: 20191004
  Serious: Yes (Hospitalization, Congenital Anomaly)
  Sender: FDA-Public Use
  Company Number: None

PATIENT
  Sex: Male
  Weight: 80.3 kg

DRUGS (5)
  1. METHOTREXATE. [Suspect]
     Active Substance: METHOTREXATE
  2. PEG/L-ASPARAGINASE [Concomitant]
     Active Substance: PEGASPARGASE
  3. VINCRISTINE SULFATE. [Concomitant]
     Active Substance: VINCRISTINE SULFATE
  4. CYCLOPHOSPHAMI [Suspect]
     Active Substance: CYCLOPHOSPHAMIDE
  5. CYTARABINE. [Concomitant]
     Active Substance: CYTARABINE

REACTIONS (13)
  - Packed red blood cell transfusion [None]
  - Headache [None]
  - Ischaemia [None]
  - Hypophagia [None]
  - Brain oedema [None]
  - Autoimmune disorder [None]
  - Haemoglobin decreased [None]
  - Intracranial pressure increased [None]
  - Vomiting [None]
  - Toxicity to various agents [None]
  - Hypoxia [None]
  - Infection [None]
  - Metabolic disorder [None]

NARRATIVE: CASE EVENT DATE: 20190609
